FAERS Safety Report 23659331 (Version 1)
Quarter: 2024Q1

REPORT INFORMATION
  Report Type: Spontaneous
  Country: FR (occurrence: FR)
  Receive Date: 20240321
  Receipt Date: 20240321
  Transmission Date: 20240409
  Serious: Yes (Other)
  Sender: FDA-Public Use
  Company Number: FR-GRUNENTHAL-2024-115441

PATIENT
  Sex: Female

DRUGS (8)
  1. ACETAMINOPHEN\TRAMADOL [Suspect]
     Active Substance: ACETAMINOPHEN\TRAMADOL
     Indication: Analgesic therapy
     Dosage: 6 DOSAGE FORM, QD (1/DAY)
     Route: 065
     Dates: start: 2005
  2. TRAMADOL [Suspect]
     Active Substance: TRAMADOL\TRAMADOL HYDROCHLORIDE
     Indication: Analgesic therapy
     Dosage: 100 MILLIGRAM, QD
     Route: 065
     Dates: start: 2005, end: 20240208
  3. TRAMADOL [Suspect]
     Active Substance: TRAMADOL\TRAMADOL HYDROCHLORIDE
     Dosage: 100 MILLIGRAM, QD (100 MILLIGRAM, 1/DAY)
     Route: 065
     Dates: start: 202402, end: 20240208
  4. TRAMADOL [Suspect]
     Active Substance: TRAMADOL\TRAMADOL HYDROCHLORIDE
     Dosage: 50 MILLIGRAM, QD
     Route: 065
     Dates: start: 202402
  5. IXPRIM [Suspect]
     Active Substance: ACETAMINOPHEN\TRAMADOL HYDROCHLORIDE
     Indication: Pain
     Dosage: UNK
     Route: 065
     Dates: start: 2002, end: 2005
  6. IXPRIM [Suspect]
     Active Substance: ACETAMINOPHEN\TRAMADOL HYDROCHLORIDE
     Dosage: 6 DOSAGE FORM, QD
     Route: 065
     Dates: start: 2017
  7. IXPRIM [Suspect]
     Active Substance: ACETAMINOPHEN\TRAMADOL HYDROCHLORIDE
     Dosage: 3 DOSAGE FORM, QD
     Route: 065
     Dates: start: 2007
  8. ARIMIDEX [Concomitant]
     Active Substance: ANASTROZOLE
     Indication: Neoplasm malignant
     Dosage: UNK
     Route: 065

REACTIONS (8)
  - Drug dependence [Unknown]
  - Pain [Unknown]
  - Muscle spasms [Unknown]
  - Stress [Unknown]
  - Feeling hot [Unknown]
  - Hyperhidrosis [Unknown]
  - Hot flush [Unknown]
  - Nervousness [Unknown]
